FAERS Safety Report 23208054 (Version 2)
Quarter: 2024Q3

REPORT INFORMATION
  Report Type: Spontaneous
  Country: JP (occurrence: JP)
  Receive Date: 20231121
  Receipt Date: 20240806
  Transmission Date: 20241016
  Serious: Yes (Other)
  Sender: REGENERON
  Company Number: JP-BAYER-2023A163668

PATIENT
  Age: 79 Year
  Sex: Male

DRUGS (1)
  1. EYLEA [Suspect]
     Active Substance: AFLIBERCEPT
     Indication: Neovascular age-related macular degeneration
     Dosage: LEFT EYE: TOTAL OF 3 DOSES PRIOR TO EVENT, 3 MONTHLY, SOL FOR INJ IN PRE-FILL SYR, 40 MG/ML
     Route: 031

REACTIONS (2)
  - Blindness unilateral [Recovering/Resolving]
  - Drug ineffective [Unknown]
